FAERS Safety Report 7162725-7 (Version None)
Quarter: 2010Q4

REPORT INFORMATION
  Report Type: 
  Country: None (occurrence: None)
  Receive Date: 20101215
  Receipt Date: 20091210
  Transmission Date: 20110411
  Serious: Yes (Other)
  Sender: FDA-Public Use
  Company Number: PE-PFIZER INC-2009309020

PATIENT
  Sex: Female
  Weight: 59.5 kg

DRUGS (6)
  1. BLINDED *LEVETIRACETAM [Suspect]
     Indication: PARTIAL SEIZURES
     Dosage: UNK
     Route: 048
     Dates: start: 20091116, end: 20091209
  2. BLINDED *NO SUBJECT DRUG [Suspect]
     Indication: PARTIAL SEIZURES
     Dosage: UNK
     Route: 048
     Dates: start: 20091116, end: 20091209
  3. BLINDED *PLACEBO [Suspect]
     Indication: PARTIAL SEIZURES
     Dosage: UNK
     Route: 048
     Dates: start: 20091116, end: 20091209
  4. PREGABALIN [Suspect]
     Indication: PARTIAL SEIZURES
     Dosage: UNK
     Route: 048
     Dates: start: 20091116, end: 20091209
  5. CLONAZEPAM [Concomitant]
     Indication: PARTIAL SEIZURES
     Dosage: 2 MG, 2X/DAY
     Dates: start: 19950216
  6. CARBAMAZEPINE [Concomitant]
     Indication: PARTIAL SEIZURES
     Dosage: 400 MG, 2X/DAY
     Dates: start: 20010101

REACTIONS (3)
  - INTENTIONAL OVERDOSE [None]
  - SEDATION [None]
  - SUICIDE ATTEMPT [None]
